FAERS Safety Report 4790837-1 (Version None)
Quarter: 2005Q4

REPORT INFORMATION
  Report Type: 
  Country: None (occurrence: None)
  Receive Date: 20051006
  Receipt Date: 20050915
  Transmission Date: 20060501
  Serious: Yes (Hospitalization)
  Sender: FDA-Public Use
  Company Number: US-ABBOTT-05P-163-0311222-00

PATIENT
  Sex: Female
  Weight: 69.008 kg

DRUGS (5)
  1. HUMIRA [Suspect]
     Indication: RHEUMATOID ARTHRITIS
     Route: 058
     Dates: start: 20050511, end: 20050915
  2. METHOTREXATE [Concomitant]
     Indication: RHEUMATOID ARTHRITIS
     Dates: start: 20041007
  3. FOLIC ACID [Concomitant]
     Indication: VITAMIN SUPPLEMENTATION
     Dates: start: 20041007
  4. CONLUNETT [Concomitant]
     Indication: CONTRACEPTION
     Dosage: 7/7/7
     Dates: start: 19890101
  5. TYLENOL (CAPLET) [Concomitant]
     Indication: INSOMNIA
     Dates: start: 20041001

REACTIONS (7)
  - CYANOSIS [None]
  - DRUG TOXICITY [None]
  - LUNG INJURY [None]
  - PERFORMANCE STATUS DECREASED [None]
  - PNEUMONIA [None]
  - PULMONARY TOXICITY [None]
  - VASCULITIS [None]
